FAERS Safety Report 8780047 (Version 1)
Quarter: 2012Q4

REPORT INFORMATION
  Report Type: 
  Country: FR (occurrence: FR)
  Receive Date: 20120912
  Receipt Date: 20120912
  Transmission Date: 20130627
  Serious: Yes (Life-Threatening)
  Sender: FDA-Public Use
  Company Number: FR-MYLANLABS-2012S1018044

PATIENT
  Age: 59 Year
  Sex: Female

DRUGS (8)
  1. ETOPOSIDE [Suspect]
     Indication: DIFFUSE LARGE B-CELL LYMPHOMA
     Dates: start: 20120719, end: 20120721
  2. HOLOXAN [Suspect]
     Indication: DIFFUSE LARGE B-CELL LYMPHOMA
     Route: 042
     Dates: start: 20120720
  3. UROMITEXAN [Suspect]
     Indication: PRODUCT USED FOR UNKNOWN INDICATION
     Route: 042
     Dates: start: 20120720, end: 20120721
  4. CARBOPLATINE [Suspect]
     Indication: DIFFUSE LARGE B-CELL LYMPHOMA
     Route: 042
     Dates: start: 20120720, end: 20120720
  5. MABTHERA [Suspect]
     Indication: DIFFUSE LARGE B-CELL LYMPHOMA
     Route: 042
     Dates: start: 20120719, end: 20120719
  6. SOLUMEDROL [Concomitant]
     Indication: PREMEDICATION
     Dates: start: 20120719
  7. PARACETAMOL [Concomitant]
     Indication: PREMEDICATION
     Dates: start: 20120719
  8. POLARAMINE [Concomitant]
     Indication: PREMEDICATION
     Dates: start: 20120717

REACTIONS (1)
  - Encephalopathy [Recovered/Resolved]
